FAERS Safety Report 18693968 (Version 1)
Quarter: 2020Q4

REPORT INFORMATION
  Report Type: Spontaneous
  Country: US (occurrence: US)
  Receive Date: 20201231
  Receipt Date: 20201231
  Transmission Date: 20210114
  Serious: Yes (Life-Threatening)
  Sender: FDA-Public Use
  Company Number: None

PATIENT
  Age: 69 Year
  Sex: Female
  Weight: 77.3 kg

DRUGS (11)
  1. ASPIRIN. [Concomitant]
     Active Substance: ASPIRIN
  2. DOCUSATE SODIUM. [Concomitant]
     Active Substance: DOCUSATE SODIUM
     Dates: start: 20201227
  3. ESOMEPRAZOLE. [Concomitant]
     Active Substance: ESOMEPRAZOLE MAGNESIUM
     Dates: start: 20201227
  4. ASPART [Concomitant]
  5. MELATONIN [Concomitant]
     Active Substance: MELATONIN
     Dates: start: 20201227
  6. ATORVASTATIN [Concomitant]
     Active Substance: ATORVASTATIN
  7. DECADRON [Concomitant]
     Active Substance: DEXAMETHASONE
     Dates: start: 20201227, end: 20201227
  8. DETEMIR [Concomitant]
     Active Substance: INSULIN DETEMIR
  9. SENNA [Concomitant]
     Active Substance: SENNA LEAF\SENNOSIDES\SENNOSIDES A AND B
     Dates: start: 20201227
  10. BAMLANIVIMAB (EUA) 700MG IN SODIUM CHLORIDE 0.9% 200ML IVPB [Suspect]
     Active Substance: BAMLANIVIMAB
     Indication: COVID-19
     Dosage: ?          OTHER FREQUENCY:ONCE;?
     Route: 040
     Dates: start: 20201228, end: 20201228
  11. LOVENOX [Concomitant]
     Active Substance: ENOXAPARIN SODIUM
     Dates: start: 20201227

REACTIONS (7)
  - Respiratory distress [None]
  - Oxygen saturation decreased [None]
  - Procalcitonin increased [None]
  - Dyspnoea [None]
  - Chills [None]
  - Chest pain [None]
  - Troponin increased [None]

NARRATIVE: CASE EVENT DATE: 20201228
